FAERS Safety Report 11779991 (Version 5)
Quarter: 2020Q3

REPORT INFORMATION
  Report Type: Report from Study
  Country: NL (occurrence: NL)
  Receive Date: 20151125
  Receipt Date: 20160210
  Transmission Date: 20201104
  Serious: Yes (Other)
  Sender: FDA-Public Use
  Company Number: NL-JNJFOC-20151113724

PATIENT
  Age: 77 Year
  Sex: Male
  Weight: 72.5 kg

DRUGS (2)
  1. JNJ?54861911 [Suspect]
     Active Substance: ATABECESTAT
     Indication: PRODROMAL ALZHEIMER^S DISEASE
     Route: 048
     Dates: start: 20151008, end: 20151112
  2. PARACETAMOL [Suspect]
     Active Substance: ACETAMINOPHEN
     Indication: INFLUENZA LIKE ILLNESS
     Dates: start: 20151101, end: 20151112

REACTIONS (1)
  - Hepatic enzyme increased [Recovering/Resolving]

NARRATIVE: CASE EVENT DATE: 20151110
